FAERS Safety Report 5092510-1 (Version None)
Quarter: 2006Q3

REPORT INFORMATION
  Report Type: 
  Country: None (occurrence: None)
  Receive Date: 20060830
  Receipt Date: 20060817
  Transmission Date: 20061208
  Serious: Yes (Hospitalization, Other)
  Sender: FDA-Public Use
  Company Number: PHBS2006HR12405

PATIENT
  Age: 67 Year
  Sex: Male
  Weight: 81 kg

DRUGS (5)
  1. AREDIA [Suspect]
     Indication: PATHOLOGICAL FRACTURE
     Dosage: 90 MG, EVERY 4 WEEKS
     Route: 042
     Dates: start: 20050301, end: 20060802
  2. ALKERAN [Concomitant]
     Dosage: 4 DAYS EVERY 4 WEEKS
     Route: 048
     Dates: start: 20050303
  3. ALKERAN [Concomitant]
     Dosage: 4 DAYS EVERY 6 WEEKS, DD 14 MG
     Route: 048
     Dates: end: 20060616
  4. DECORTIN [Concomitant]
     Dosage: 4 DAYS EVERY 4 WEEKS
     Route: 048
     Dates: start: 20050303
  5. DECORTIN [Concomitant]
     Dosage: 4 DAYS EVERY 6 WEEKS, DD 100 MG
     Route: 048
     Dates: end: 20060616

REACTIONS (9)
  - BONE DEBRIDEMENT [None]
  - BONE DISORDER [None]
  - DRY SOCKET [None]
  - ORAL SURGERY [None]
  - OSTEOMYELITIS [None]
  - OSTEONECROSIS [None]
  - PLASTIC SURGERY [None]
  - TOOTH EXTRACTION [None]
  - TOOTH FRACTURE [None]
